FAERS Safety Report 8971997 (Version 1)
Quarter: 2012Q4

REPORT INFORMATION
  Report Type: 
  Country: CH (occurrence: CH)
  Receive Date: 20121218
  Receipt Date: 20121218
  Transmission Date: 20130627
  Serious: Yes (Other)
  Sender: FDA-Public Use
  Company Number: PHHY2012CH115923

PATIENT
  Age: 0 Year
  Sex: Female
  Weight: 2.6 kg

DRUGS (5)
  1. NORFLOXACIN [Suspect]
     Route: 064
  2. FLUCONAZOLE [Suspect]
     Route: 064
  3. RIVOTRIL [Suspect]
     Route: 064
  4. CYPROTERONE [Suspect]
     Route: 064
  5. CYPROTERONE [Suspect]
     Route: 064

REACTIONS (2)
  - Premature baby [Recovered/Resolved]
  - Foetal exposure during pregnancy [Recovered/Resolved]
